FAERS Safety Report 4287936-X (Version None)
Quarter: 2004Q1

REPORT INFORMATION
  Report Type: 
  Country: None (occurrence: None)
  Receive Date: 20040205
  Receipt Date: 20040130
  Transmission Date: 20041129
  Serious: Yes (Life-Threatening)
  Sender: FDA-Public Use
  Company Number: TCI2003A04606

PATIENT
  Age: 65 Year
  Sex: Male

DRUGS (10)
  1. LANSOPRAZOLE [Suspect]
     Indication: GASTRIC ULCER
     Dosage: 30 M G (30 MG, 1 IN 1 D) PER ORAL
     Route: 048
     Dates: start: 20031016, end: 20031020
  2. PROMAC (POLAPREZINC) (GRANULATE) [Concomitant]
  3. GASTROM (ECABET MONOSODIUM) (GRANULATE) [Concomitant]
  4. PREDONISOLONE (PREDNISOLONE) [Concomitant]
  5. SUCRALFATE (SUCRALFATE) (SOLUTION) [Concomitant]
  6. VOLTAREN [Concomitant]
  7. FESIN (SACCHARATED IRON OXIDE) (INJECTION) [Concomitant]
  8. ELIETEN (METOCLOPRAMIDE) (INJECTION) [Concomitant]
  9. HALOSPOR (CEFOTIAM HYDROCHLORIDE) (INJECTION) [Concomitant]
  10. MEROPEN (MEROPENEM) (INJECTION) [Concomitant]

REACTIONS (6)
  - BLOOD PRESSURE DECREASED [None]
  - BONE MARROW DEPRESSION [None]
  - GASTRIC ULCER HAEMORRHAGE [None]
  - HYPOXIA [None]
  - PANCYTOPENIA [None]
  - PNEUMONIA [None]
